FAERS Safety Report 8509808-4 (Version None)
Quarter: 2012Q3

REPORT INFORMATION
  Report Type: 
  Country: None (occurrence: None)
  Receive Date: 20120703
  Receipt Date: 20120619
  Transmission Date: 20120928
  Serious: Yes (Life-Threatening, Hospitalization, Other)
  Sender: FDA-Public Use
  Company Number: DSM-2012-00680

PATIENT
  Age: 60 Year
  Sex: Male

DRUGS (1)
  1. OLMETEC PLUS (HYDROCHLOROTHIAZIDE, OLMESARTAN MEDOXOMIL) (TABLET) (HYD [Suspect]
     Indication: PRODUCT USED FOR UNKNOWN INDICATION
     Dosage: 20/25 MG, ORAL
     Route: 048
     Dates: start: 20070101

REACTIONS (4)
  - REFUSAL OF TREATMENT BY PATIENT [None]
  - HEART RATE INCREASED [None]
  - ARRHYTHMIA [None]
  - ATRIAL FIBRILLATION [None]
